FAERS Safety Report 7019673-2 (Version None)
Quarter: 2010Q3

REPORT INFORMATION
  Report Type: 
  Country: None (occurrence: None)
  Receive Date: 20100928
  Receipt Date: 20100928
  Transmission Date: 20110219
  Serious: Yes (Hospitalization)
  Sender: FDA-Public Use
  Company Number: None

PATIENT
  Age: 62 Year
  Sex: Female

DRUGS (18)
  1. NAPROXEN [Suspect]
     Indication: CEREBROVASCULAR ACCIDENT
     Dosage: 500 MG BID PO
     Route: 048
  2. NAPROXEN [Suspect]
     Indication: PERIPHERAL ARTERIAL OCCLUSIVE DISEASE
     Dosage: 500 MG BID PO
     Route: 048
  3. CLOPIDOGREL [Suspect]
     Dosage: 75 MG DAILY PO
     Route: 048
  4. ACTOS [Concomitant]
  5. SIIMVASTATIN [Concomitant]
  6. ADVAIR DISKUS 100/50 [Concomitant]
  7. ATENOLOL [Concomitant]
  8. NITROGLYCERIN [Concomitant]
  9. BUSPAR [Concomitant]
  10. REQUIP [Concomitant]
  11. CELEBREX [Concomitant]
  12. VICODIN [Concomitant]
  13. COMBIVENT [Concomitant]
  14. FEXOFENADINE HCL [Concomitant]
  15. FLUTICASONE PROPIONATE [Concomitant]
  16. FUROSEMIDE [Concomitant]
  17. POTASSIUM CHLORIDE [Concomitant]
  18. SERTRALINE HYDROCHLORIDE [Concomitant]

REACTIONS (5)
  - ASTHENIA [None]
  - CHEST DISCOMFORT [None]
  - DYSPHAGIA [None]
  - DYSPNOEA EXERTIONAL [None]
  - MELAENA [None]
